FAERS Safety Report 5491622-8 (Version None)
Quarter: 2007Q4

REPORT INFORMATION
  Report Type: 
  Country: None (occurrence: None)
  Receive Date: 20071017
  Receipt Date: 20071017
  Transmission Date: 20080405
  Serious: Yes (Other)
  Sender: FDA-Public Use
  Company Number: None

PATIENT
  Age: 47 Year
  Sex: Male
  Weight: 126.1 kg

DRUGS (1)
  1. VARENICLINE TARTRATE .5MG PFIZER [Suspect]
     Indication: SMOKING CESSATION THERAPY
     Dosage: .5MG BID PO
     Route: 048
     Dates: start: 20070720, end: 20070727

REACTIONS (1)
  - HYPERSENSITIVITY [None]
